FAERS Safety Report 7636315-3 (Version None)
Quarter: 2011Q3

REPORT INFORMATION
  Report Type: 
  Country: None (occurrence: None)
  Receive Date: 20110726
  Receipt Date: 20110706
  Transmission Date: 20111222
  Serious: Yes (Hospitalization)
  Sender: FDA-Public Use
  Company Number: US-GLAXOSMITHKLINE-A0886020A

PATIENT
  Age: 55 Year
  Sex: Female
  Weight: 97.3 kg

DRUGS (15)
  1. ALBUTEROL SULFATE AUTOHALER [Concomitant]
  2. AVANDIA [Suspect]
     Indication: TYPE 2 DIABETES MELLITUS
     Dosage: 4MG PER DAY
     Route: 048
     Dates: start: 20040301, end: 20100819
  3. VALTREX [Concomitant]
  4. METFORMIN HCL [Concomitant]
  5. ACTOS [Concomitant]
  6. TEKTURNA [Concomitant]
  7. ZOLOFT [Concomitant]
  8. ETODOLAC [Concomitant]
  9. XANAX [Concomitant]
  10. ASPIRIN [Concomitant]
  11. LASIX [Concomitant]
  12. VYTORIN [Concomitant]
  13. ADVAIR DISKUS 100/50 [Concomitant]
  14. NORVASC [Concomitant]
  15. NOVOLIN 70/30 [Concomitant]

REACTIONS (4)
  - ISCHAEMIC CARDIOMYOPATHY [None]
  - STRESS CARDIOMYOPATHY [None]
  - CARDIAC FAILURE CONGESTIVE [None]
  - MYOCARDIAL INFARCTION [None]
